FAERS Safety Report 10046865 (Version 1)
Quarter: 2014Q1

REPORT INFORMATION
  Report Type: Spontaneous
  Country: US (occurrence: None)
  Receive Date: 20140328
  Receipt Date: 20140328
  Transmission Date: 20141002
  Serious: Yes (Disabling)
  Sender: FDA-Public Use
  Company Number: None

PATIENT
  Age: 34 Year
  Sex: Female
  Weight: 56.7 kg

DRUGS (2)
  1. COMPAZINE [Suspect]
     Indication: NAUSEA
     Dates: start: 20070307
  2. COMPAZINE [Suspect]
     Indication: VOMITING
     Dates: start: 20070307

REACTIONS (8)
  - Paranoia [None]
  - Panic attack [None]
  - Drug hypersensitivity [None]
  - Anxiety [None]
  - Muscle spasms [None]
  - Stress [None]
  - Activities of daily living impaired [None]
  - Depression [None]
